FAERS Safety Report 13245295 (Version 1)
Quarter: 2017Q1

REPORT INFORMATION
  Report Type: Spontaneous
  Country: US (occurrence: US)
  Receive Date: 20170217
  Receipt Date: 20170217
  Transmission Date: 20170428
  Serious: No
  Sender: FDA-Public Use
  Company Number: US-TEVA-739363ACC

PATIENT
  Sex: Female

DRUGS (5)
  1. OXYTROL [Concomitant]
     Active Substance: OXYBUTYNIN
  2. COPAXONE [Suspect]
     Active Substance: GLATIRAMER ACETATE
     Indication: MULTIPLE SCLEROSIS
     Route: 058
     Dates: start: 20160802
  3. CALCIUM [Concomitant]
     Active Substance: CALCIUM
  4. PAROXETINE. [Concomitant]
     Active Substance: PAROXETINE
  5. FISH OIL [Concomitant]
     Active Substance: FISH OIL

REACTIONS (1)
  - Injection site pain [Not Recovered/Not Resolved]
